FAERS Safety Report 18203988 (Version 5)
Quarter: 2020Q4

REPORT INFORMATION
  Report Type: Spontaneous
  Country: IE (occurrence: IE)
  Receive Date: 20200827
  Receipt Date: 20201014
  Transmission Date: 20210113
  Serious: No
  Sender: FDA-Public Use
  Company Number: IE-JNJFOC-20200817973

PATIENT
  Sex: Male

DRUGS (3)
  1. DUROGESIC D-TRANS [Suspect]
     Active Substance: FENTANYL
  2. DUROGESIC D-TRANS [Suspect]
     Active Substance: FENTANYL
     Indication: PRODUCT USED FOR UNKNOWN INDICATION
     Dosage: STRENGTH: 50.00 MCG/HR
     Route: 062
  3. DUROGESIC D-TRANS [Suspect]
     Active Substance: FENTANYL

REACTIONS (5)
  - Pain [Unknown]
  - Product complaint [Unknown]
  - Therapeutic product effect decreased [Unknown]
  - Product adhesion issue [Unknown]
  - Product dose omission issue [Unknown]
